FAERS Safety Report 14556208 (Version 1)
Quarter: 2018Q1

REPORT INFORMATION
  Report Type: Spontaneous
  Country: NL (occurrence: NL)
  Receive Date: 20180221
  Receipt Date: 20180221
  Transmission Date: 20180509
  Serious: Yes (Hospitalization, Other)
  Sender: FDA-Public Use
  Company Number: NL-SUN PHARMACEUTICAL INDUSTRIES LTD-2018RR-163912

PATIENT
  Age: 70 Year
  Sex: Male
  Weight: 173 kg

DRUGS (1)
  1. ATORVASTATINE RANBAXY [Suspect]
     Active Substance: ATORVASTATIN
     Indication: PROPHYLAXIS
     Dosage: 1D1 20 MG
     Route: 065
     Dates: start: 20170209, end: 20170810

REACTIONS (2)
  - Product substitution issue [Recovered/Resolved]
  - Hypersensitivity vasculitis [Recovered/Resolved]

NARRATIVE: CASE EVENT DATE: 2017
